FAERS Safety Report 14693321 (Version 1)
Quarter: 2018Q1

REPORT INFORMATION
  Report Type: Spontaneous
  Country: US (occurrence: US)
  Receive Date: 20180329
  Receipt Date: 20180329
  Transmission Date: 20180509
  Serious: Yes (Death)
  Sender: FDA-Public Use
  Company Number: US-PERRIGO-18US003376

PATIENT
  Age: 41 Year
  Sex: Male
  Weight: 95.24 kg

DRUGS (1)
  1. LOPERAMIDE HYDROCHLORIDE. [Suspect]
     Active Substance: LOPERAMIDE HYDROCHLORIDE
     Indication: INTENTIONAL PRODUCT MISUSE
     Dosage: 700 MG, OVER 3 DAYS
     Route: 048
     Dates: start: 20180216, end: 20180218

REACTIONS (2)
  - Intentional product misuse [Unknown]
  - Intentional overdose [Fatal]

NARRATIVE: CASE EVENT DATE: 20180216
